FAERS Safety Report 15155263 (Version 9)
Quarter: 2021Q1

REPORT INFORMATION
  Report Type: Spontaneous
  Country: IT (occurrence: IT)
  Receive Date: 20180717
  Receipt Date: 20210108
  Transmission Date: 20210419
  Serious: Yes (Other)
  Sender: FDA-Public Use
  Company Number: PHHY2018IT045807

PATIENT
  Age: 63 Year
  Sex: Female
  Weight: 62 kg

DRUGS (18)
  1. LAPATINIB [Suspect]
     Active Substance: LAPATINIB
     Indication: HER2 POSITIVE BREAST CANCER
     Dosage: 250 MG (MOST RECENT DOSE PRIOR TO THE EVENT: 30/MAR/2018) (MOST RECENT DOSE PRIOR TO THE EVENT: 08/J
     Route: 048
     Dates: start: 20171219
  2. XANAX [Concomitant]
     Active Substance: ALPRAZOLAM
     Indication: PRODUCT USED FOR UNKNOWN INDICATION
     Route: 065
  3. TRASTUZUMAB. [Suspect]
     Active Substance: TRASTUZUMAB
     Indication: HER2 POSITIVE BREAST CANCER
     Dosage: 8 MG/KG, Q3W (MOST RECENT DOSE PRIOR TO THE EVENT: 24/FEB/2017)
     Route: 041
     Dates: start: 20170131
  4. AROMASIN [Suspect]
     Active Substance: EXEMESTANE
     Indication: HER2 POSITIVE BREAST CANCER
     Dosage: DATE OF MOST RENCET DOSE: 19/DEC/2017
     Route: 048
     Dates: start: 20170726
  5. DENOSUMAB [Concomitant]
     Active Substance: DENOSUMAB
     Indication: PRODUCT USED FOR UNKNOWN INDICATION
     Route: 065
     Dates: start: 20170823, end: 20180727
  6. PACLITAXEL. [Suspect]
     Active Substance: PACLITAXEL
     Indication: HER2 POSITIVE BREAST CANCER
     Dosage: 110 MG, QW (MOST RECENT DOSE PRIOR TO THE EVENT: 05/JUL/2017)MOST RECENT DOSE PRIOR TO THE EVENT: 10
     Route: 042
     Dates: start: 20170131
  7. SERTRALINE [Concomitant]
     Active Substance: SERTRALINE HYDROCHLORIDE
     Indication: PRODUCT USED FOR UNKNOWN INDICATION
     Dosage: UNK
     Route: 065
  8. COLECALCIFEROL [Concomitant]
     Active Substance: CHOLECALCIFEROL
     Indication: PRODUCT USED FOR UNKNOWN INDICATION
     Dosage: UNK
     Route: 065
     Dates: start: 20170726
  9. PERTUZUMAB. [Suspect]
     Active Substance: PERTUZUMAB
     Indication: HER2 POSITIVE BREAST CANCER
     Dosage: MOST RECENT DOSE PRIOR TO THE EVENT: 31/JAN/2017
     Route: 042
     Dates: start: 20170131
  10. MEDROL [Concomitant]
     Active Substance: METHYLPREDNISOLONE
     Dosage: UNK
     Route: 065
     Dates: start: 20180725, end: 20180731
  11. CAPECITABINE. [Suspect]
     Active Substance: CAPECITABINE
     Dosage: MOST RECENT DOSE ON 19/JAN/2018UNK
     Route: 048
     Dates: start: 20171220
  12. MEDROL [Concomitant]
     Active Substance: METHYLPREDNISOLONE
     Indication: PRODUCT USED FOR UNKNOWN INDICATION
     Dosage: UNK
     Route: 065
     Dates: start: 20180720, end: 20180724
  13. TYKERB [Suspect]
     Active Substance: LAPATINIB DITOSYLATE
     Indication: HER2 POSITIVE BREAST CANCER
     Dosage: 250 MG, (MOST RECENT DOSE PRIOR TO THE EVENT: 30/MAR/2018)
     Route: 048
  14. EXEMESTANE. [Suspect]
     Active Substance: EXEMESTANE
     Indication: HER2 POSITIVE BREAST CANCER
     Dosage: 25 MG, QD (DATE OF MOST RENCET DOSE: 19/DEC/2017)
     Route: 048
     Dates: start: 20170726
  15. CAPECITABINE. [Suspect]
     Active Substance: CAPECITABINE
     Indication: HER2 POSITIVE BREAST CANCER
     Dosage: 3000 MG, QD (MOST RECENT DOSE ON08/JAN/2018,  19/JAN/2018)
     Route: 048
     Dates: start: 20171220
  16. TAXOL [Suspect]
     Active Substance: PACLITAXEL
     Indication: HER2 POSITIVE BREAST CANCER
     Dosage: MOST RECENT DOSE PRIOR TO THE EVENT: 05/JUL/2017
     Route: 042
     Dates: start: 20170131
  17. VINORELBINE [Suspect]
     Active Substance: VINORELBINE TARTRATE
     Indication: BREAST CANCER
     Dosage: 60 MG/M2, Q3W (MOST RECENT DOSE WAS ON 17/AUG/2018)
     Route: 048
     Dates: start: 20180727
  18. GIANT [Concomitant]
     Active Substance: AMLODIPINE BESYLATE\OLMESARTAN MEDOXOMIL
     Indication: BREAST CANCER
     Dosage: UNK
     Route: 065
     Dates: start: 20171004

REACTIONS (5)
  - Diarrhoea [Recovered/Resolved]
  - Malaise [Recovered/Resolved]
  - Hypokalaemia [Recovered/Resolved]
  - Asthenia [Recovered/Resolved]
  - Diarrhoea [Recovered/Resolved]

NARRATIVE: CASE EVENT DATE: 20170531
